FAERS Safety Report 7509858-0 (Version None)
Quarter: 2011Q2

REPORT INFORMATION
  Report Type: 
  Country: None (occurrence: None)
  Receive Date: 20110527
  Receipt Date: 20110428
  Transmission Date: 20111010
  Serious: Yes (Other)
  Sender: FDA-Public Use
  Company Number: B0718772A

PATIENT
  Sex: Female

DRUGS (3)
  1. VALPROATE SODIUM [Concomitant]
     Indication: EPILEPSY
     Dosage: 400MG TWICE PER DAY
     Route: 048
     Dates: start: 20110324
  2. LAMOTRIGINE [Suspect]
     Indication: IDIOPATHIC GENERALISED EPILEPSY
     Dosage: 200MG TWICE PER DAY
     Route: 048
     Dates: start: 20080523, end: 20100602
  3. KEPPRA [Suspect]
     Indication: JUVENILE MYOCLONIC EPILEPSY
     Dosage: 1500MG TWICE PER DAY
     Route: 048

REACTIONS (4)
  - AGGRESSION [None]
  - MOOD ALTERED [None]
  - THERMAL BURN [None]
  - CONVULSION [None]
